FAERS Safety Report 6879684-4 (Version None)
Quarter: 2010Q3

REPORT INFORMATION
  Report Type: 
  Country: None (occurrence: None)
  Receive Date: 20100728
  Receipt Date: 20100714
  Transmission Date: 20110219
  Serious: Yes (Hospitalization, Other)
  Sender: FDA-Public Use
  Company Number: US-ELI_LILLY_AND_COMPANY-US201007005374

PATIENT
  Sex: Female

DRUGS (5)
  1. FORTEO [Suspect]
     Indication: OSTEOPOROSIS
     Dosage: 20 UG, DAILY (1/D)
  2. ZOCOR [Concomitant]
  3. DILTIAZEM [Concomitant]
  4. PANTOPRAZOLE [Concomitant]
  5. ALTACE [Concomitant]

REACTIONS (2)
  - CARDIAC FIBRILLATION [None]
  - MALAISE [None]
